FAERS Safety Report 4610293-3 (Version None)
Quarter: 2005Q1

REPORT INFORMATION
  Report Type: 
  Country: None (occurrence: None)
  Receive Date: 20050314
  Receipt Date: 20050228
  Transmission Date: 20050727
  Serious: Yes (Other)
  Sender: FDA-Public Use
  Company Number: 2005038137

PATIENT
  Sex: Female
  Weight: 78.0187 kg

DRUGS (7)
  1. NEURONTIN [Suspect]
     Indication: ILL-DEFINED DISORDER
     Dosage: 900 MG (4 IN 1 D), ORAL
     Route: 048
     Dates: start: 19990101
  2. CELEBREX [Suspect]
     Indication: ARTHRITIS
     Dosage: 800 MG (400 MG, 2 IN 1 D), ORAL
     Route: 048
     Dates: start: 20040201
  3. CLONAZEPAM [Concomitant]
  4. DONEPEZIL HCL [Concomitant]
  5. FOLIC ACID [Concomitant]
  6. ATORVASTATIN CALCIUM [Concomitant]
  7. ESTRADIOL [Concomitant]

REACTIONS (7)
  - COMPLEX REGIONAL PAIN SYNDROME [None]
  - INSOMNIA [None]
  - MEDICATION ERROR [None]
  - PAIN IN EXTREMITY [None]
  - PHARMACEUTICAL PRODUCT COMPLAINT [None]
  - SPINAL OSTEOARTHRITIS [None]
  - WRIST FRACTURE [None]
